FAERS Safety Report 7162409-5 (Version None)
Quarter: 2010Q4

REPORT INFORMATION
  Report Type: 
  Country: None (occurrence: None)
  Receive Date: 20101215
  Receipt Date: 20101206
  Transmission Date: 20110411
  Serious: Yes (Other)
  Sender: FDA-Public Use
  Company Number: US-JNJFOC-20101202835

PATIENT
  Age: 64 Year
  Sex: Female
  Weight: 56.7 kg

DRUGS (18)
  1. DITROPAN XL [Suspect]
     Indication: HYPERTONIC BLADDER
     Route: 065
  2. TOVIAZ [Suspect]
     Indication: HYPERTONIC BLADDER
     Route: 048
  3. CALCIUM WITH VITAMIN D [Concomitant]
     Route: 065
  4. RESTASIS [Concomitant]
     Indication: EYE DISORDER
     Route: 065
  5. UNKNOWN MEDICATION [Concomitant]
     Indication: EYE DISORDER
     Route: 065
  6. SINGULAIR [Concomitant]
     Route: 065
  7. ASPIRIN [Concomitant]
     Route: 065
  8. WELLBUTRIN [Concomitant]
     Route: 065
  9. KLONOPIN [Concomitant]
     Route: 065
  10. LUMIGAN [Concomitant]
     Indication: EYE DISORDER
     Dosage: 1 DROP IN EACH EYE
     Route: 047
  11. NEURONTIN [Concomitant]
     Route: 065
  12. MIDODRINE HYDROCHLORIDE [Concomitant]
     Indication: HYPOTENSION
     Dosage: 1 AND HALF TABLET
     Route: 048
  13. FOSAMAX [Concomitant]
     Route: 065
  14. FLEXERIL [Concomitant]
     Route: 065
  15. PRILOSEC [Concomitant]
     Route: 065
  16. ZETIA [Concomitant]
     Route: 065
  17. DEPAKOTE [Concomitant]
     Dosage: 2 IN MORNING AND 2 AT NIGHT
     Route: 065
  18. CITRUCEL [Concomitant]
     Indication: CONSTIPATION
     Route: 065

REACTIONS (8)
  - DEHYDRATION [None]
  - DRUG INEFFECTIVE [None]
  - DRY MOUTH [None]
  - JOINT SWELLING [None]
  - LIMB DISCOMFORT [None]
  - OEDEMA PERIPHERAL [None]
  - ROAD TRAFFIC ACCIDENT [None]
  - WEIGHT INCREASED [None]
